FAERS Safety Report 7658615-3 (Version None)
Quarter: 2011Q3

REPORT INFORMATION
  Report Type: 
  Country: None (occurrence: None)
  Receive Date: 20110805
  Receipt Date: 20110725
  Transmission Date: 20111222
  Serious: Yes (Disabling, Other)
  Sender: FDA-Public Use
  Company Number: US-RANBAXY-2011RR-46556

PATIENT
  Age: 64 Year
  Sex: Female
  Weight: 93.9 kg

DRUGS (8)
  1. TRICOR [Suspect]
     Indication: PRODUCT USED FOR UNKNOWN INDICATION
     Dosage: 145 MG, QD
     Route: 048
  2. KLOR-CON [Suspect]
     Dosage: 10 MG, QD
     Route: 048
     Dates: start: 20110101
  3. ATENOLOL [Suspect]
     Indication: BLOOD PRESSURE FLUCTUATION
     Dosage: 50 MG, BID
     Route: 048
  4. KLOR-CON [Suspect]
     Indication: PRODUCT USED FOR UNKNOWN INDICATION
     Dosage: 10 MG, BID
     Route: 048
     Dates: start: 20110101
  5. NORVASC [Suspect]
     Indication: BLOOD PRESSURE FLUCTUATION
     Dosage: 10 MG, UNK
     Route: 065
  6. METFFORMIN HYDROCHLORIDE [Suspect]
     Indication: DIABETES MELLITUS
     Dosage: 500 MG, QD
     Route: 048
  7. LIPITOR [Suspect]
     Indication: PRODUCT USED FOR UNKNOWN INDICATION
     Dosage: 20 MG, UNK
     Route: 048
     Dates: start: 20110301, end: 20110527
  8. BENICAR [Suspect]
     Indication: PRODUCT USED FOR UNKNOWN INDICATION
     Dosage: 40 MG, UNK
     Route: 048

REACTIONS (3)
  - DRUG INTERACTION [None]
  - OEDEMA PERIPHERAL [None]
  - MYALGIA [None]
